FAERS Safety Report 8809716 (Version 2)
Quarter: 2012Q4

REPORT INFORMATION
  Report Type: 
  Country: US (occurrence: US)
  Receive Date: 20120926
  Receipt Date: 20121005
  Transmission Date: 20130627
  Serious: Yes (Death, Hospitalization)
  Sender: FDA-Public Use
  Company Number: US-MILLENNIUM PHARMACEUTICALS, INC.-2012-06570

PATIENT
  Sex: Male

DRUGS (12)
  1. VELCADE [Suspect]
     Indication: LYMPHOMA
     Dosage: 1.6 mg/m2, Cyclic
     Route: 042
     Dates: start: 20120821, end: 20120828
  2. ROMIDEPSIN [Suspect]
     Indication: LYMPHOMA
     Dosage: 8 mg/m2, Cyclic
     Route: 042
     Dates: start: 20120821, end: 20120828
  3. ALLOPURINOL [Concomitant]
     Indication: PRODUCT USED FOR UNKNOWN INDICATION
     Dosage: 100 mg, qd
     Dates: start: 20120807, end: 20120911
  4. BACLOFEN [Concomitant]
     Indication: PRODUCT USED FOR UNKNOWN INDICATION
     Dosage: 10 mg, prn
     Dates: start: 20120904, end: 20120904
  5. FINASTERIDE [Concomitant]
     Indication: PRODUCT USED FOR UNKNOWN INDICATION
     Dosage: 5 mg, qd
     Dates: start: 20120807, end: 20120911
  6. GABAPENTIN [Concomitant]
     Indication: NEURALGIA
     Dosage: 300 mg, UNK
     Dates: start: 20120807, end: 20120911
  7. GLIPIZIDE [Concomitant]
     Indication: DIABETES MELLITUS
     Dosage: 5 mg, qd
     Dates: start: 20120807, end: 20120904
  8. METFORMIN [Concomitant]
     Indication: DIABETES MELLITUS
     Dosage: 500 mg, qd
     Dates: start: 20120807, end: 20120911
  9. MAGNESIUM OXIDE [Concomitant]
     Indication: HYPOMAGNESAEMIA
     Dosage: 400 mg, bid
     Dates: start: 20120821, end: 20120911
  10. OMEPRAZOLE [Concomitant]
     Indication: GASTROOESOPHAGEAL REFLUX DISEASE
     Dosage: 20 mg, qd
     Dates: start: 20120807, end: 20120911
  11. PRAVASTATIN [Concomitant]
     Indication: HYPERCHOLESTEROLAEMIA
     Dosage: 20 mg, qd
     Dates: start: 20120807, end: 20120911
  12. PROCHLORPERAZINE [Concomitant]
     Indication: NAUSEA
     Dosage: 10 mg, prn
     Dates: start: 20120828

REACTIONS (4)
  - Weight decreased [Unknown]
  - Disease progression [Fatal]
  - Fatigue [Unknown]
  - Decreased appetite [Unknown]
